FAERS Safety Report 8919256 (Version 1)
Quarter: 2012Q4

REPORT INFORMATION
  Report Type: 
  Country: US (occurrence: US)
  Receive Date: 20121121
  Receipt Date: 20121121
  Transmission Date: 20130627
  Serious: No
  Sender: FDA-Public Use
  Company Number: US-PFIZER INC-2012271075

PATIENT
  Age: 50 Year
  Sex: Female

DRUGS (1)
  1. BOSULIF [Suspect]
     Dosage: 400 mg, 1x/day (four tablets of 100mg)
     Route: 048
     Dates: start: 20121019

REACTIONS (2)
  - Diarrhoea [Recovering/Resolving]
  - Nausea [Recovering/Resolving]
